FAERS Safety Report 21515856 (Version 2)
Quarter: 2022Q4

REPORT INFORMATION
  Report Type: Spontaneous
  Country: US (occurrence: US)
  Receive Date: 20221027
  Receipt Date: 20221116
  Transmission Date: 20230113
  Serious: Yes (Life-Threatening, Hospitalization)
  Sender: FDA-Public Use
  Company Number: US-TEVA-2022-US-2818725

PATIENT
  Age: 46 Year
  Sex: Female

DRUGS (2)
  1. HYDROMORPHONE [Suspect]
     Active Substance: HYDROMORPHONE
     Indication: Neck pain
     Route: 042
  2. FENTANYL [Suspect]
     Active Substance: FENTANYL
     Indication: Neck pain
     Route: 042

REACTIONS (1)
  - Respiratory failure [Recovered/Resolved]
